FAERS Safety Report 10244953 (Version 1)
Quarter: 2014Q2

REPORT INFORMATION
  Report Type: Spontaneous
  Country: US (occurrence: US)
  Receive Date: 20140618
  Receipt Date: 20140618
  Transmission Date: 20141212
  Serious: No
  Sender: FDA-Public Use
  Company Number: US-GALDERMA-US14000907

PATIENT
  Age: 63 Year
  Sex: Male

DRUGS (5)
  1. MIRVASO (BRIMONIDINE) TOPICAL GEL, 0.33% [Suspect]
     Indication: ROSACEA
     Dosage: 0.33%
     Route: 061
     Dates: start: 201402, end: 201402
  2. LISINOPRIL [Concomitant]
     Dosage: 10 MG
  3. SIMVASTIN [Concomitant]
  4. MENS DAILY VITAMIN [Concomitant]
  5. VITAMIN D [Concomitant]
     Dosage: 2000 IU
     Route: 048

REACTIONS (3)
  - Condition aggravated [Unknown]
  - Skin burning sensation [Unknown]
  - Erythema [Unknown]
